FAERS Safety Report 15639637 (Version 1)
Quarter: 2018Q4

REPORT INFORMATION
  Report Type: Spontaneous
  Country: FR (occurrence: FR)
  Receive Date: 20181120
  Receipt Date: 20181120
  Transmission Date: 20190205
  Serious: Yes (Other)
  Sender: FDA-Public Use
  Company Number: FR-CORDEN PHARMA LATINA S.P.A.-FR-2018COR000141

PATIENT
  Sex: Female

DRUGS (10)
  1. CARBOPLATIN. [Suspect]
     Active Substance: CARBOPLATIN
     Dosage: (AUC 4) ON DAYS 1 AND 8, FOR 6 CYCLES
     Route: 065
     Dates: start: 201508, end: 201512
  2. CARBOPLATIN. [Suspect]
     Active Substance: CARBOPLATIN
     Dosage: UNK, 6 CYCLES, 20% REDUCED DOSE DURING CYCLE 4
     Route: 065
     Dates: start: 2017
  3. PACLITAXEL. [Suspect]
     Active Substance: PACLITAXEL
     Indication: OVARIAN CANCER
     Dosage: 175 MG/M2 (CYCLES 1, 2 AND 6)
     Route: 065
     Dates: start: 2012
  4. GEMCITABINE [Suspect]
     Active Substance: GEMCITABINE\GEMCITABINE HYDROCHLORIDE
     Dosage: UNK, 6 CYCLES, 20% REDUCED DOSE DURING CYCLE 4
     Route: 065
     Dates: start: 2017
  5. CARBOPLATIN. [Suspect]
     Active Substance: CARBOPLATIN
     Dosage: UNK, ON DAYS 1 AND 8
     Route: 065
     Dates: start: 20161110, end: 20161122
  6. BEVACIZUMAB. [Suspect]
     Active Substance: BEVACIZUMAB
     Dosage: UNK, 2 CYCLES
     Route: 065
     Dates: start: 2013
  7. GEMCITABINE [Suspect]
     Active Substance: GEMCITABINE\GEMCITABINE HYDROCHLORIDE
     Indication: OVARIAN CANCER
     Dosage: ON DAYS 1 AND 8, FOR 6 CYCLES
     Route: 065
     Dates: start: 201508, end: 201512
  8. CARBOPLATIN. [Suspect]
     Active Substance: CARBOPLATIN
     Indication: OVARIAN CANCER
     Dosage: TARGET AREA UNDER THE CURVE [AUC] = 6
     Route: 065
     Dates: start: 2012
  9. BEVACIZUMAB. [Suspect]
     Active Substance: BEVACIZUMAB
     Indication: OVARIAN CANCER
     Dosage: (CYCLES 3, 4, AND 5), UNK
     Route: 065
     Dates: start: 2012
  10. GEMCITABINE [Suspect]
     Active Substance: GEMCITABINE\GEMCITABINE HYDROCHLORIDE
     Dosage: UNK, ON DAYS 1 AND 8
     Route: 065
     Dates: start: 20161110, end: 20161122

REACTIONS (10)
  - Anaemia [Unknown]
  - Drug hypersensitivity [Recovered/Resolved]
  - Asthenia [Unknown]
  - Neutropenia [Unknown]
  - Alopecia [Unknown]
  - Hepatotoxicity [Recovered/Resolved]
  - Neuropathy peripheral [Unknown]
  - Thrombocytopenia [Unknown]
  - Pneumonia [Unknown]
  - Escherichia infection [Recovered/Resolved]

NARRATIVE: CASE EVENT DATE: 2012
